FAERS Safety Report 12184755 (Version 2)
Quarter: 2016Q2

REPORT INFORMATION
  Report Type: Spontaneous
  Country: US (occurrence: US)
  Receive Date: 20160316
  Receipt Date: 20160511
  Transmission Date: 20160815
  Serious: Yes (Hospitalization, Other)
  Sender: FDA-Public Use
  Company Number: US-PFIZER INC-2016152395

PATIENT
  Age: 52 Year
  Sex: Male

DRUGS (6)
  1. ANDROGEL [Suspect]
     Active Substance: TESTOSTERONE
     Indication: HORMONE REPLACEMENT THERAPY
     Dosage: UNK, DAILY
     Dates: start: 20120807, end: 20120907
  2. DEPO-TESTOSTERONE [Suspect]
     Active Substance: TESTOSTERONE CYPIONATE
     Indication: HORMONE REPLACEMENT THERAPY
     Dosage: UNK, BI-MONTHLY
     Dates: start: 20120821, end: 20120921
  3. DEPO-TESTOSTERONE [Suspect]
     Active Substance: TESTOSTERONE CYPIONATE
     Dosage: UNK, BI-MONTHLY
     Dates: start: 20130115, end: 20130215
  4. TESTOSTERONE CIPIONATE [Suspect]
     Active Substance: TESTOSTERONE
     Indication: HORMONE REPLACEMENT THERAPY
     Dosage: UNK, BI-MONTHLY
     Dates: start: 20120921, end: 20130718
  5. DEPO-TESTOSTERONE [Suspect]
     Active Substance: TESTOSTERONE CYPIONATE
     Dosage: UNK, BI-MONTHLY
     Dates: start: 20140224, end: 20140324
  6. ANDRODERM [Suspect]
     Active Substance: TESTOSTERONE
     Indication: HORMONE REPLACEMENT THERAPY
     Dosage: UNK, DAILY
     Dates: start: 20120501, end: 20120806

REACTIONS (2)
  - Cerebrovascular accident [Unknown]
  - Brain injury [Not Recovered/Not Resolved]

NARRATIVE: CASE EVENT DATE: 20140305
